FAERS Safety Report 5823966-1 (Version None)
Quarter: 2008Q3

REPORT INFORMATION
  Report Type: 
  Country: None (occurrence: None)
  Receive Date: 20080728
  Receipt Date: 20080721
  Transmission Date: 20090109
  Serious: Yes (Hospitalization)
  Sender: FDA-Public Use
  Company Number: GB-RANBAXY-2008RR-16565

PATIENT

DRUGS (10)
  1. ACYCLOVIR [Suspect]
     Indication: HERPES ZOSTER
     Dosage: 800 MG, UNK
     Route: 048
     Dates: start: 20080702, end: 20080707
  2. WARFARIN SODIUM [Suspect]
  3. BEZAFIBRATE [Concomitant]
     Dosage: 400 MG, UNK
     Route: 048
  4. BISOPROLOL FUMARATE [Concomitant]
     Dosage: 2.5 MG, UNK
  5. BUMETANIDE [Concomitant]
     Dosage: 3 MG, UNK
  6. CO-DYDRAMOL [Concomitant]
     Dosage: 1 DF, TID
  7. DILTIAZEM HCL [Concomitant]
     Dosage: 60 MG, TID
     Route: 048
  8. LANSOPRAZOLE [Concomitant]
     Dosage: 15 MG, UNK
     Route: 048
  9. MIXTARD HUMAN 70/30 [Concomitant]
  10. NICORANDIL [Concomitant]
     Dosage: 10 MG, BID

REACTIONS (2)
  - DRUG INTERACTION [None]
  - INTERNATIONAL NORMALISED RATIO INCREASED [None]
